FAERS Safety Report 8587573 (Version 6)
Quarter: 2013Q2

REPORT INFORMATION
  Report Type: Spontaneous
  Country: JP (occurrence: JP)
  Receive Date: 20120531
  Receipt Date: 20130621
  Transmission Date: 20140414
  Serious: Yes (Life-Threatening, Hospitalization, Other)
  Sender: FDA-Public Use
  Company Number: JP-MPIJNJ-2012-02879

PATIENT
  Sex: 0

DRUGS (10)
  1. VELCADE [Suspect]
     Indication: PLASMA CELL MYELOMA
     Dosage: 2.1 MG, UNK
     Route: 042
     Dates: start: 20120409, end: 20120416
  2. MAGMITT [Concomitant]
     Indication: CONSTIPATION
     Dosage: 660 MG, UNK
     Route: 048
     Dates: start: 20120211
  3. KAYWAN [Concomitant]
     Indication: COAGULOPATHY
     Dosage: 20 MG, UNK
     Route: 048
     Dates: start: 20120321
  4. FAMOTIDINE [Concomitant]
     Indication: PEPTIC ULCER
     Dosage: 20 MG, UNK
     Route: 048
     Dates: start: 20120314
  5. VFEND [Concomitant]
     Indication: SYSTEMIC MYCOSIS
     Dosage: 150 MG, UNK
     Route: 048
     Dates: start: 20120326
  6. URSODEOXYCHOLIC ACID [Concomitant]
     Indication: LIVER DISORDER
     Dosage: 200 MG, UNK
     Route: 048
     Dates: start: 20120321
  7. CALONAL [Concomitant]
     Indication: BONE PAIN
     Dosage: 400 MG, UNK
     Route: 048
     Dates: start: 20120404
  8. OXYCONTIN [Concomitant]
     Indication: BONE PAIN
     Dosage: 15 MG, UNK
     Route: 048
     Dates: start: 20120203
  9. OXINORM                            /00547301/ [Concomitant]
     Indication: BONE PAIN
     Dosage: 5 MG, UNK
     Route: 048
     Dates: start: 20120203
  10. LANADEXON                          /00016001/ [Concomitant]
     Indication: PLASMA CELL MYELOMA
     Dosage: 20 MG, UNK
     Route: 048
     Dates: start: 20120409, end: 20120419

REACTIONS (3)
  - Posterior reversible encephalopathy syndrome [Recovered/Resolved]
  - Platelet count decreased [Recovered/Resolved]
  - Neuropathy peripheral [Not Recovered/Not Resolved]
